FAERS Safety Report 4779814-4 (Version None)
Quarter: 2005Q3

REPORT INFORMATION
  Report Type: 
  Country: None (occurrence: None)
  Receive Date: 20050927
  Receipt Date: 20050921
  Transmission Date: 20060218
  Serious: Yes (Hospitalization)
  Sender: FDA-Public Use
  Company Number: US-JNJFOC-20050905368

PATIENT
  Sex: Male
  Weight: 58.06 kg

DRUGS (3)
  1. FENTANYL [Suspect]
     Route: 062
     Dates: start: 20050501
  2. FENTANYL [Suspect]
     Route: 062
     Dates: start: 20050501
  3. SOMA [Concomitant]

REACTIONS (4)
  - ABDOMINAL PAIN UPPER [None]
  - CYST [None]
  - FLATULENCE [None]
  - STOMACH DISCOMFORT [None]
